FAERS Safety Report 9590670 (Version 1)
Quarter: 2013Q4

REPORT INFORMATION
  Report Type: Spontaneous
  Country: US (occurrence: US)
  Receive Date: 20131003
  Receipt Date: 20131003
  Transmission Date: 20140711
  Serious: No
  Sender: FDA-Public Use
  Company Number: US-AMGEN-USASP2012078132

PATIENT
  Age: 65 Year
  Sex: Female

DRUGS (4)
  1. ENBREL [Suspect]
     Indication: RHEUMATOID ARTHRITIS
     Dosage: 50 MG, QWK
  2. ENBREL [Suspect]
     Indication: PSORIASIS
  3. HUMIRA [Concomitant]
     Dosage: UNK
  4. CIMZIA [Concomitant]
     Dosage: UNK

REACTIONS (4)
  - Rash generalised [Recovered/Resolved]
  - Foot deformity [Recovered/Resolved]
  - Psoriasis [Recovered/Resolved]
  - Injection site pain [Not Recovered/Not Resolved]
